FAERS Safety Report 9043196 (Version 1)
Quarter: 2013Q1

REPORT INFORMATION
  Report Type: Report from Study
  Country: US (occurrence: US)
  Receive Date: 20130129
  Receipt Date: 20130129
  Transmission Date: 20140127
  Serious: No
  Sender: FDA-Public Use
  Company Number: US-ABBOTT-12P-163-0904103-00

PATIENT
  Age: 61 Year
  Sex: Male

DRUGS (9)
  1. HUMIRA 40 MG/0.8 ML PEN [Suspect]
     Indication: CROHN^S DISEASE
     Dates: start: 201112
  2. LOMOTIL [Concomitant]
     Indication: PRODUCT USED FOR UNKNOWN INDICATION
     Dosage: 0.25 MG X 2 TABS 4 TIMES DAILY
  3. CHLORDIAZEPOXIDE [Concomitant]
     Indication: PRODUCT USED FOR UNKNOWN INDICATION
  4. FLECAINIDE ACETATE [Concomitant]
     Indication: PRODUCT USED FOR UNKNOWN INDICATION
     Route: 048
  5. WARFARIN SODIUM [Concomitant]
     Indication: PRODUCT USED FOR UNKNOWN INDICATION
     Dosage: 1MG X 1 DAY, THEN 2MG X 3DAYS THEN REPEAT
  6. AZATHIOPRINE [Concomitant]
     Indication: PRODUCT USED FOR UNKNOWN INDICATION
     Dosage: 50 MG DAILY
  7. MULTIVITAMIN [Concomitant]
     Indication: PRODUCT USED FOR UNKNOWN INDICATION
     Dosage: DAILY
  8. OMEPRAZOLE [Concomitant]
     Indication: PRODUCT USED FOR UNKNOWN INDICATION
     Dosage: 20 MG DAILY
  9. FLUDROCORTISONE [Concomitant]
     Indication: PRODUCT USED FOR UNKNOWN INDICATION

REACTIONS (8)
  - Headache [Not Recovered/Not Resolved]
  - Aphagia [Not Recovered/Not Resolved]
  - Photophobia [Not Recovered/Not Resolved]
  - Sinus headache [Not Recovered/Not Resolved]
  - Bedridden [Not Recovered/Not Resolved]
  - Migraine [Not Recovered/Not Resolved]
  - Rectal haemorrhage [Unknown]
  - Arthritis [Not Recovered/Not Resolved]
